FAERS Safety Report 8336333-6 (Version None)
Quarter: 2012Q1

REPORT INFORMATION
  Report Type: 
  Country: None (occurrence: None)
  Receive Date: 20120329
  Receipt Date: 20100413
  Transmission Date: 20120608
  Serious: Yes (Other)
  Sender: FDA-Public Use
  Company Number: PHHY2010US23180

PATIENT
  Age: 89 Year
  Sex: Female
  Weight: 45.4 kg

DRUGS (4)
  1. THYROID THERAPY (NO INGREDIENTS/SUBSTANCES) [Concomitant]
  2. EXELON [Suspect]
     Dosage: 1 PATCH ONCE DAILY AND 1 PATCH EVERY 48 HOURS, TRANSDERMAL
     Route: 062
  3. ANTIPERTENSIVE DRUGS (NO INGREDIENTS/SUBSTANCES) [Concomitant]
  4. CENTRUM (MIONERALS NOS, VITAMINS NOS) [Concomitant]

REACTIONS (6)
  - RASH [None]
  - FATIGUE [None]
  - MALAISE [None]
  - HEART RATE IRREGULAR [None]
  - ASTHENIA [None]
  - HYPERTENSION [None]
